FAERS Safety Report 20810986 (Version 1)
Quarter: 2022Q2

REPORT INFORMATION
  Report Type: Spontaneous
  Country: US (occurrence: US)
  Receive Date: 20220510
  Receipt Date: 20220510
  Transmission Date: 20220721
  Serious: No
  Sender: FDA-Public Use
  Company Number: US-PFIZER INC-2021130182

PATIENT
  Age: 41 Year
  Sex: Male

DRUGS (2)
  1. RAPAMUNE [Suspect]
     Active Substance: SIROLIMUS
     Dosage: 1 MG DAILY FOR 7 DAYS, THEN 1 MG 2X/DAY FOR 7 DAYS, THEN 1 MG 3X/DAY FOR 7 DAYS, THEN REST A WEEK
     Route: 048
  2. RAPAMUNE [Suspect]
     Active Substance: SIROLIMUS
     Dosage: 1 MG, THREE TIMES DAILY FOR 21 DAYS, THEN REST A WEEK
     Route: 048

REACTIONS (2)
  - Renal pain [Unknown]
  - Off label use [Unknown]
